FAERS Safety Report 11073580 (Version 1)
Quarter: 2015Q2

REPORT INFORMATION
  Report Type: Report from Study
  Country: US (occurrence: US)
  Receive Date: 20150428
  Receipt Date: 20150428
  Transmission Date: 20150821
  Serious: Yes (Hospitalization)
  Sender: FDA-Public Use
  Company Number: US-ACTELION-A-US2015-114842

PATIENT
  Age: 70 Year
  Sex: Male
  Weight: 91.16 kg

DRUGS (3)
  1. MACITENTAN [Suspect]
     Active Substance: MACITENTAN
     Indication: PULMONARY ARTERIAL HYPERTENSION
     Dosage: 10 MG, QD
     Route: 048
  2. RIOCIGUAT [Suspect]
     Active Substance: RIOCIGUAT
     Dosage: 0.5 MG, TID
     Route: 065
     Dates: start: 201504
  3. RIOCIGUAT [Suspect]
     Active Substance: RIOCIGUAT
     Indication: PRODUCT USED FOR UNKNOWN INDICATION
     Dosage: 1.0 MG, UNK
     Route: 065
     Dates: end: 201504

REACTIONS (8)
  - Oedema peripheral [Recovered/Resolved]
  - Fatigue [Unknown]
  - Abdominal distension [Unknown]
  - Weight increased [Unknown]
  - Fluid retention [Recovered/Resolved]
  - Dyspnoea [Unknown]
  - Asthenia [Unknown]
  - Cardiac septal defect [Unknown]

NARRATIVE: CASE EVENT DATE: 20150416
